FAERS Safety Report 8845866 (Version 1)
Quarter: 2012Q4

REPORT INFORMATION
  Report Type: Report from Study
  Country: NL (occurrence: NL)
  Receive Date: 20121017
  Receipt Date: 20121017
  Transmission Date: 20130627
  Serious: Yes (Other)
  Sender: FDA-Public Use
  Company Number: NL-BAXTER-2012BAX019018

PATIENT
  Age: 11 Year
  Sex: Male

DRUGS (6)
  1. KIOVIG 100 MG/ML SOLUTION POUR PERFUSION (20 G/200 ML) [Suspect]
     Indication: COMMON VARIABLE IMMUNODEFICIENCY
     Dates: start: 20120320
  2. KIOVIG 100 MG/ML SOLUTION POUR PERFUSION (20 G/200 ML) [Suspect]
     Route: 042
     Dates: start: 20120911
  3. KIOVIG 100 MG/ML SOLUTION POUR PERFUSION (20 G/200 ML) [Suspect]
     Route: 042
     Dates: start: 20121002
  4. KIOVIG [Suspect]
     Indication: COMMON VARIABLE IMMUNODEFICIENCY
     Route: 042
     Dates: start: 20120320
  5. KIOVIG [Suspect]
     Route: 042
     Dates: start: 20120911
  6. KIOVIG [Suspect]
     Route: 042
     Dates: start: 20121002

REACTIONS (3)
  - Blastocystis infection [Unknown]
  - Gastrointestinal disorder [Not Recovered/Not Resolved]
  - Gastrointestinal inflammation [Unknown]
